FAERS Safety Report 5091110-7 (Version None)
Quarter: 2006Q3

REPORT INFORMATION
  Report Type: 
  Country: None (occurrence: None)
  Receive Date: 20060727
  Receipt Date: 20060330
  Transmission Date: 20061208
  Serious: Yes (Other)
  Sender: FDA-Public Use
  Company Number: 2006045359

PATIENT

DRUGS (1)
  1. LYRICA [Suspect]
     Indication: NEUROPATHY
     Dosage: 200 MG (100 MG,2 IN 1 D)

REACTIONS (3)
  - AMNESIA [None]
  - DIZZINESS [None]
  - ROAD TRAFFIC ACCIDENT [None]
